FAERS Safety Report 4868750-0 (Version None)
Quarter: 2005Q4

REPORT INFORMATION
  Report Type: 
  Country: None (occurrence: None)
  Receive Date: 20051223
  Receipt Date: 20051214
  Transmission Date: 20060501
  Serious: Yes (Death, Life-Threatening, Other)
  Sender: FDA-Public Use
  Company Number: 2005JP002283

PATIENT
  Age: 73 Year
  Sex: Male
  Weight: 74 kg

DRUGS (3)
  1. FUNGUARD (MICAFUNGIN) INJECTION [Suspect]
     Indication: RESPIRATORY MONILIASIS
     Dosage: 100 MG, UID/QD, IV DRIP
     Route: 041
     Dates: start: 20050616, end: 20050622
  2. TIENAM /SWE/ (IMIPENEM, CILASTATIN) INJECTION [Concomitant]
  3. TARGOCID [Concomitant]

REACTIONS (5)
  - ALANINE AMINOTRANSFERASE INCREASED [None]
  - ASPARTATE AMINOTRANSFERASE INCREASED [None]
  - BLOOD PRESSURE DECREASED [None]
  - CONDITION AGGRAVATED [None]
  - HYPERBILIRUBINAEMIA [None]
